FAERS Safety Report 5418983-X (Version None)
Quarter: 2007Q3

REPORT INFORMATION
  Report Type: 
  Country: None (occurrence: None)
  Receive Date: 20070817
  Receipt Date: 20070806
  Transmission Date: 20080115
  Serious: Yes (Other)
  Sender: FDA-Public Use
  Company Number: US-PFIZER INC-2007066444

PATIENT
  Sex: Female
  Weight: 63.181 kg

DRUGS (7)
  1. LYRICA [Suspect]
     Indication: NEUROPATHY PERIPHERAL
     Dosage: FREQ:TWICE DAILY EVERY DAY
  2. CLONAZEPAM [Concomitant]
  3. TIZANIDINE HCL [Concomitant]
  4. ESTRADIOL [Concomitant]
  5. LEVOTHROID [Concomitant]
  6. TEMAZEPAM [Concomitant]
  7. VALIUM [Concomitant]

REACTIONS (2)
  - ABASIA [None]
  - BALANCE DISORDER [None]
